FAERS Safety Report 16409407 (Version 1)
Quarter: 2019Q2

REPORT INFORMATION
  Report Type: Spontaneous
  Country: US (occurrence: US)
  Receive Date: 20190610
  Receipt Date: 20190610
  Transmission Date: 20190711
  Serious: No
  Sender: FDA-Public Use
  Company Number: US-PFIZER INC-2019236262

PATIENT
  Sex: Female

DRUGS (1)
  1. VFEND [Suspect]
     Active Substance: VORICONAZOLE
     Dosage: UNK

REACTIONS (5)
  - Tooth discolouration [Unknown]
  - Lip swelling [Unknown]
  - Swelling face [Unknown]
  - Joint swelling [Unknown]
  - Peripheral swelling [Unknown]
